FAERS Safety Report 5797675-1 (Version None)
Quarter: 2008Q3

REPORT INFORMATION
  Report Type: 
  Country: None (occurrence: None)
  Receive Date: 20080702
  Receipt Date: 20080624
  Transmission Date: 20090109
  Serious: Yes (Other)
  Sender: FDA-Public Use
  Company Number: US-JNJFOC-20080606280

PATIENT
  Sex: Female

DRUGS (2)
  1. NIZORAL A-D [Suspect]
     Route: 061
  2. NIZORAL A-D [Suspect]
     Indication: DRUG USE FOR UNKNOWN INDICATION
     Route: 061

REACTIONS (1)
  - CHEMICAL BURN OF SKIN [None]
